FAERS Safety Report 9777544 (Version 1)
Quarter: 2013Q4

REPORT INFORMATION
  Report Type: Spontaneous
  Country: FR (occurrence: FR)
  Receive Date: 20131222
  Receipt Date: 20131222
  Transmission Date: 20140711
  Serious: Yes (Hospitalization)
  Sender: FDA-Public Use
  Company Number: FR-US-EMD SERONO, INC.-7257524

PATIENT
  Sex: Female

DRUGS (3)
  1. OVITRELLE [Suspect]
     Indication: IN VITRO FERTILISATION
     Dosage: SOLUTION FOR INJECTION IN A PRE-FILLED SYRINGE; 250 MICROGRAMS/0.5 ML
     Route: 058
     Dates: start: 20130525
  2. PUREGON /01348901/ [Suspect]
     Indication: IN VITRO FERTILISATION
     Route: 058
     Dates: start: 20130512, end: 20130523
  3. DECAPEPTYL /00486501/ [Suspect]
     Indication: IN VITRO FERTILISATION
     Dosage: (EXTENDED-RELEASE FORM OVER 28 DAYS) 3 MG, POWDER AND SOLVENT FOR SUSPENSION FOR INJECTION
     Route: 030
     Dates: start: 201305

REACTIONS (2)
  - Ovarian hyperstimulation syndrome [Recovered/Resolved]
  - Ascites [Recovered/Resolved]
